FAERS Safety Report 17500776 (Version 1)
Quarter: 2020Q1

REPORT INFORMATION
  Report Type: Spontaneous
  Country: US (occurrence: US)
  Receive Date: 20200224
  Receipt Date: 20200224
  Transmission Date: 20200409
  Serious: Yes (Hospitalization)
  Sender: FDA-Public Use
  Company Number: None

PATIENT
  Age: 86 Year
  Sex: Male

DRUGS (8)
  1. ACYCLOVIR. [Concomitant]
     Active Substance: ACYCLOVIR
  2. IMBRUVICA [Concomitant]
     Active Substance: IBRUTINIB
  3. LASIX [Concomitant]
     Active Substance: FUROSEMIDE
  4. TAMSULOSIN [Concomitant]
     Active Substance: TAMSULOSIN
  5. VALPROIC ACID. [Concomitant]
     Active Substance: VALPROIC ACID
  6. ESBRIET [Suspect]
     Active Substance: PIRFENIDONE
     Indication: IDIOPATHIC PULMONARY FIBROSIS
     Route: 048
     Dates: start: 20191104
  7. CRESTOR [Concomitant]
     Active Substance: ROSUVASTATIN CALCIUM
  8. MELATONIN [Concomitant]
     Active Substance: MELATONIN

REACTIONS (4)
  - Fall [None]
  - Dyspnoea [None]
  - Therapy cessation [None]
  - Dizziness [None]

NARRATIVE: CASE EVENT DATE: 20200218
